FAERS Safety Report 25638180 (Version 1)
Quarter: 2025Q3

REPORT INFORMATION
  Report Type: Spontaneous
  Country: US (occurrence: US)
  Receive Date: 20250804
  Receipt Date: 20250804
  Transmission Date: 20251021
  Serious: Yes (Death)
  Sender: MYLAN
  Company Number: US-MYLANLABS-2025M1065877

PATIENT
  Sex: Female

DRUGS (4)
  1. CYSTAGON [Suspect]
     Active Substance: CYSTEAMINE BITARTRATE
     Indication: Cystinuria
     Dosage: 450 MILLIGRAM, QID (4 TIMES DAILY)
     Dates: start: 202201
  2. CYSTAGON [Suspect]
     Active Substance: CYSTEAMINE BITARTRATE
     Indication: Cystinosis
     Dosage: 450 MILLIGRAM, QID (4 TIMES DAILY)
     Route: 048
     Dates: start: 202201
  3. CYSTAGON [Suspect]
     Active Substance: CYSTEAMINE BITARTRATE
     Dosage: 450 MILLIGRAM, QID (4 TIMES DAILY)
     Route: 048
     Dates: start: 202201
  4. CYSTAGON [Suspect]
     Active Substance: CYSTEAMINE BITARTRATE
     Dosage: 450 MILLIGRAM, QID (4 TIMES DAILY)
     Dates: start: 202201

REACTIONS (1)
  - Death [Fatal]
